FAERS Safety Report 24435590 (Version 2)
Quarter: 2024Q4

REPORT INFORMATION
  Report Type: Spontaneous
  Country: BE (occurrence: BE)
  Receive Date: 20241015
  Receipt Date: 20241029
  Transmission Date: 20250115
  Serious: Yes (Other)
  Sender: NOVO NORDISK
  Company Number: BE-NOVOPROD-1295868

PATIENT
  Sex: Female

DRUGS (1)
  1. OZEMPIC [Suspect]
     Active Substance: SEMAGLUTIDE
     Indication: Product used for unknown indication
     Dosage: UNK
     Dates: start: 2020

REACTIONS (5)
  - Cutaneous vasculitis [Unknown]
  - Macule [Unknown]
  - Petechiae [Unknown]
  - Skin atrophy [Unknown]
  - Actinic elastosis [Unknown]

NARRATIVE: CASE EVENT DATE: 20220101
